FAERS Safety Report 18366774 (Version 1)
Quarter: 2020Q4

REPORT INFORMATION
  Report Type: Spontaneous
  Country: JP (occurrence: JP)
  Receive Date: 20201009
  Receipt Date: 20201009
  Transmission Date: 20210114
  Serious: Yes (Hospitalization)
  Sender: FDA-Public Use
  Company Number: JP-CELGENEUS-JPN-20201001418

PATIENT
  Sex: Male

DRUGS (2)
  1. AMRUBICIN [Suspect]
     Active Substance: AMRUBICIN
     Route: 040
     Dates: start: 20200930
  2. AMRUBICIN [Suspect]
     Active Substance: AMRUBICIN
     Indication: PRODUCT USED FOR UNKNOWN INDICATION
     Route: 040
     Dates: start: 202007

REACTIONS (1)
  - Seizure [Not Recovered/Not Resolved]

NARRATIVE: CASE EVENT DATE: 20200902
